FAERS Safety Report 17709553 (Version 1)
Quarter: 2020Q2

REPORT INFORMATION
  Report Type: Spontaneous
  Country: BG (occurrence: BG)
  Receive Date: 20200427
  Receipt Date: 20200427
  Transmission Date: 20200714
  Serious: Yes (Other)
  Sender: FDA-Public Use
  Company Number: BG-BAUSCH-BL-2020-012178

PATIENT
  Age: 68 Year
  Sex: Female

DRUGS (3)
  1. BRIMONIDINE [Suspect]
     Active Substance: BRIMONIDINE TARTRATE
     Indication: INTRAOCULAR PRESSURE DECREASED
     Dosage: BOTH EYES
     Route: 047
     Dates: start: 2015
  2. BRINZOLAMIDE\TIMOLOL [Suspect]
     Active Substance: BRINZOLAMIDE\TIMOLOL
     Indication: INTRAOCULAR PRESSURE DECREASED
     Dosage: BOTH EYES,FIXED COMBINATION
     Route: 047
     Dates: start: 2015
  3. TRAVOPROST. [Suspect]
     Active Substance: TRAVOPROST
     Indication: INTRAOCULAR PRESSURE DECREASED
     Dosage: BOTH EYES
     Route: 047
     Dates: start: 2015

REACTIONS (1)
  - Choroidal effusion [Recovered/Resolved]
